FAERS Safety Report 7338971-6 (Version None)
Quarter: 2011Q1

REPORT INFORMATION
  Report Type: 
  Country: None (occurrence: None)
  Receive Date: 20110308
  Receipt Date: 20110223
  Transmission Date: 20110831
  Serious: Yes (Hospitalization)
  Sender: FDA-Public Use
  Company Number: DE-ELI_LILLY_AND_COMPANY-DE201102006610

PATIENT
  Sex: Female

DRUGS (4)
  1. ZYPADHERA [Suspect]
     Indication: SCHIZOPHRENIA
     Dosage: 300 MG, UNKNOWN
     Route: 051
     Dates: start: 20101208
  2. AKINETON [Concomitant]
     Dosage: 4 MG, UNKNOWN
     Route: 065
  3. ALLOPURINOL [Concomitant]
     Dosage: UNK, UNKNOWN
     Route: 065
  4. CITALOPRAM HYDROBROMIDE [Concomitant]
     Dosage: 20 MG, UNKNOWN
     Route: 065

REACTIONS (1)
  - INJECTION SITE ABSCESS [None]
